FAERS Safety Report 7041672-5 (Version None)
Quarter: 2010Q4

REPORT INFORMATION
  Report Type: 
  Country: None (occurrence: None)
  Receive Date: 20101013
  Receipt Date: 20101004
  Transmission Date: 20110411
  Serious: Yes (Other)
  Sender: FDA-Public Use
  Company Number: FR-ROCHE-731586

PATIENT

DRUGS (2)
  1. CAPECITABINE [Suspect]
     Route: 048
  2. VINORELBINE [Suspect]
     Dosage: FREQUENCY: DAYS 1, 8.
     Route: 048

REACTIONS (10)
  - ARRHYTHMIA [None]
  - CARDIOTOXICITY [None]
  - CONSTIPATION [None]
  - DIARRHOEA [None]
  - FATIGUE [None]
  - FEBRILE NEUTROPENIA [None]
  - HEPATOTOXICITY [None]
  - MUCOSAL INFLAMMATION [None]
  - NAUSEA [None]
  - NEUTROPENIA [None]
